FAERS Safety Report 7363136-1 (Version None)
Quarter: 2011Q1

REPORT INFORMATION
  Report Type: 
  Country: None (occurrence: None)
  Receive Date: 20110321
  Receipt Date: 20110222
  Transmission Date: 20110831
  Serious: Yes (Hospitalization, Other)
  Sender: FDA-Public Use
  Company Number: US-BAYER-200943370NA

PATIENT
  Sex: Female
  Weight: 102 kg

DRUGS (7)
  1. ASCORBIC ACID [Concomitant]
     Dosage: UNK UNK, QD
     Route: 048
  2. YAZ [Suspect]
     Indication: MENSTRUATION IRREGULAR
     Dates: start: 20080106, end: 20080128
  3. YAZ [Suspect]
     Indication: MENORRHAGIA
  4. IBUPROFEN [Concomitant]
     Dosage: UNK
     Dates: end: 20080101
  5. MULTI-VITAMIN [Concomitant]
     Indication: MEDICAL DIET
     Dosage: UNK
     Dates: start: 20080106, end: 20080128
  6. PROAIR HFA [Concomitant]
     Indication: ASTHMA
     Dosage: UNK
     Dates: end: 20080101
  7. ASCORBIC ACID [Concomitant]
     Indication: MEDICAL DIET
     Dosage: UNK
     Dates: start: 20040101

REACTIONS (4)
  - INJURY [None]
  - PULMONARY EMBOLISM [None]
  - DEEP VEIN THROMBOSIS [None]
  - PULMONARY INFARCTION [None]
